FAERS Safety Report 8375879-1 (Version None)
Quarter: 2012Q2

REPORT INFORMATION
  Report Type: 
  Country: None (occurrence: None)
  Receive Date: 20120522
  Receipt Date: 20120514
  Transmission Date: 20120825
  Serious: Yes (Hospitalization, Other)
  Sender: FDA-Public Use
  Company Number: US-ASTRAZENECA-2011SE53391

PATIENT
  Age: 59 Year
  Sex: Female

DRUGS (21)
  1. HUMALOG [Concomitant]
     Route: 065
     Dates: start: 19990615
  2. FLORINAL [Concomitant]
     Dosage: 5.-325-40 MG 1-2 SIXHOURLY
     Route: 065
  3. GLUCAGEN [Concomitant]
     Dosage: 1 MG SOLR AS DIRECTED
     Route: 065
  4. DIAZEPAM [Concomitant]
     Route: 048
  5. ASPIRIN [Concomitant]
     Route: 048
  6. CRESTOR [Suspect]
     Route: 048
     Dates: start: 20090929
  7. VITAMIN D [Concomitant]
     Dosage: 1000 UNITS DAILY
     Route: 065
  8. DURAGESIC-100 [Concomitant]
     Route: 065
  9. CRESTOR [Suspect]
     Route: 048
     Dates: start: 20100319, end: 20100630
  10. METAMUCIL-2 [Concomitant]
     Dosage: DAILY
     Route: 065
  11. DOCUSATE [Concomitant]
     Indication: FAECES HARD
     Dosage: AS NEEDED
     Route: 065
  12. PREMARIN [Concomitant]
     Dosage: APPLY DAILY
     Route: 065
  13. HYDROCHLOROTHIAZIDE [Concomitant]
     Route: 065
  14. COREG [Concomitant]
     Route: 065
  15. CRESTOR [Suspect]
     Route: 048
     Dates: start: 20110126
  16. REQUIP [Concomitant]
     Route: 065
  17. PERCOCET [Concomitant]
     Dosage: 7.5-325 MG TABLET THREE HOURLY
     Route: 065
  18. DIOVAN [Concomitant]
     Route: 048
  19. LEXAPRO [Concomitant]
     Route: 048
  20. FOSAMAX [Concomitant]
     Route: 048
  21. FLONASE [Concomitant]
     Dosage: 50 MCG/ACT SUSP ONE SPRAY EACH NOSTRIL PER DAY
     Route: 045

REACTIONS (32)
  - FALL [None]
  - UNRESPONSIVE TO STIMULI [None]
  - SCAPULA FRACTURE [None]
  - ARTHRITIS [None]
  - BLOOD GLUCOSE INCREASED [None]
  - CARDIAC MURMUR [None]
  - HEPATOMEGALY [None]
  - LUNG NEOPLASM [None]
  - ENCEPHALOPATHY [None]
  - SPINAL CORD COMPRESSION [None]
  - VITAMIN D DEFICIENCY [None]
  - IMPAIRED GASTRIC EMPTYING [None]
  - RESTLESS LEGS SYNDROME [None]
  - URINARY TRACT INFECTION [None]
  - ATTENTION DEFICIT/HYPERACTIVITY DISORDER [None]
  - TIBIA FRACTURE [None]
  - DIABETIC KETOACIDOSIS [None]
  - HYPERTENSION [None]
  - DIABETIC NEUROPATHY [None]
  - HIATUS HERNIA [None]
  - GOITRE [None]
  - BILIARY DILATATION [None]
  - PROTEINURIA [None]
  - NEUROPATHIC ARTHROPATHY [None]
  - SKIN ULCER [None]
  - LIVER FUNCTION TEST ABNORMAL [None]
  - MENOPAUSAL SYMPTOMS [None]
  - HYPERLIPIDAEMIA [None]
  - ACUTE MYOCARDIAL INFARCTION [None]
  - PYELONEPHRITIS [None]
  - BRACHIAL PLEXOPATHY [None]
  - CARDIOMYOPATHY [None]
